FAERS Safety Report 5371562-5 (Version None)
Quarter: 2007Q2

REPORT INFORMATION
  Report Type: 
  Country: None (occurrence: None)
  Receive Date: 20070625
  Receipt Date: 20070625
  Transmission Date: 20071010
  Serious: Yes (Hospitalization)
  Sender: FDA-Public Use
  Company Number: None

PATIENT
  Age: 67 Year
  Sex: Male

DRUGS (2)
  1. MIDAZOLAM HCL [Suspect]
     Dosage: 2MG ONCE IV
     Route: 042
     Dates: start: 20070305, end: 20070305
  2. FENTANYL [Suspect]
     Dosage: 100MCG ONCE IV
     Route: 042

REACTIONS (3)
  - DYSPNOEA [None]
  - HYPOXIA [None]
  - RESPIRATORY DEPRESSION [None]
